FAERS Safety Report 18952498 (Version 2)
Quarter: 2021Q1

REPORT INFORMATION
  Report Type: Spontaneous
  Country: US (occurrence: US)
  Receive Date: 20210301
  Receipt Date: 20210326
  Transmission Date: 20210420
  Serious: No
  Sender: FDA-Public Use
  Company Number: US-ELI_LILLY_AND_COMPANY-US202102012968

PATIENT
  Age: 62 Year
  Sex: Female

DRUGS (2)
  1. HUMULIN R U?500 [Suspect]
     Active Substance: INSULIN HUMAN
     Dosage: UNK UNK, UNKNOWN
     Route: 065
  2. HUMULIN R U?500 [Suspect]
     Active Substance: INSULIN HUMAN
     Indication: PRODUCT USED FOR UNKNOWN INDICATION
     Dosage: UNK UNK, UNKNOWN
     Route: 065

REACTIONS (4)
  - Nasopharyngitis [Unknown]
  - Gastroenteritis viral [Unknown]
  - Pyrexia [Unknown]
  - COVID-19 [Unknown]

NARRATIVE: CASE EVENT DATE: 202102
